FAERS Safety Report 7105425-1 (Version None)
Quarter: 2010Q4

REPORT INFORMATION
  Report Type: 
  Country: None (occurrence: None)
  Receive Date: 20101110
  Receipt Date: 20101026
  Transmission Date: 20110411
  Serious: Yes (Other)
  Sender: FDA-Public Use
  Company Number: 1000017088

PATIENT
  Age: 84 Year
  Sex: Female

DRUGS (5)
  1. MEMANTINE HCL [Suspect]
     Indication: DEMENTIA
     Dosage: 5 MG (5 MG, 1 IN 1 D), ORAL, 10 MG (5 MG, 2 IN 1 D), ORAL
     Route: 048
     Dates: start: 20100701, end: 20100901
  2. MEMANTINE HCL [Suspect]
     Indication: DEMENTIA
     Dosage: 5 MG (5 MG, 1 IN 1 D), ORAL, 10 MG (5 MG, 2 IN 1 D), ORAL
     Route: 048
     Dates: start: 20100901
  3. RISPERIDONE [Concomitant]
  4. ARICEPT [Concomitant]
  5. AAS (ACETYLSALICYLIC ACID (ACETYLSALICYLIC ACID) [Concomitant]

REACTIONS (3)
  - CYSTITIS [None]
  - HALLUCINATION [None]
  - INSOMNIA [None]
